FAERS Safety Report 10642810 (Version 1)
Quarter: 2014Q4

REPORT INFORMATION
  Report Type: Spontaneous
  Country: US (occurrence: None)
  Receive Date: 20141209
  Receipt Date: 20141209
  Transmission Date: 20150529
  Serious: Yes (Disabling)
  Sender: FDA-Public Use
  Company Number: None

PATIENT
  Age: 47 Year
  Sex: Male
  Weight: 91.17 kg

DRUGS (1)
  1. MEFLOQUINE [Suspect]
     Active Substance: MEFLOQUINE
     Indication: PRODUCT USED FOR UNKNOWN INDICATION
     Dosage: 1 PILL
     Route: 048
     Dates: start: 20080801, end: 20091226

REACTIONS (8)
  - Agitation [None]
  - Obsessive-compulsive disorder [None]
  - Anxiety [None]
  - Nervous system disorder [None]
  - Nightmare [None]
  - Depression [None]
  - Affective disorder [None]
  - Paranoia [None]

NARRATIVE: CASE EVENT DATE: 20080801
